FAERS Safety Report 6064916-5 (Version None)
Quarter: 2009Q1

REPORT INFORMATION
  Report Type: 
  Country: None (occurrence: None)
  Receive Date: 20090204
  Receipt Date: 20090113
  Transmission Date: 20090719
  Serious: Yes (Other)
  Sender: FDA-Public Use
  Company Number: AU-JNJFOC-20090103210

PATIENT
  Sex: Male
  Weight: 93 kg

DRUGS (3)
  1. RISPERDAL CONSTA [Suspect]
     Indication: DRUG USE FOR UNKNOWN INDICATION
     Route: 030
  2. RISPERIDONE [Suspect]
     Indication: DRUG USE FOR UNKNOWN INDICATION
     Route: 048
  3. MELATONIN [Suspect]
     Indication: SLEEP DISORDER THERAPY
     Route: 048

REACTIONS (6)
  - BLOOD GLUCOSE INCREASED [None]
  - DEPRESSED MOOD [None]
  - EJACULATION DISORDER [None]
  - ERECTILE DYSFUNCTION [None]
  - SKIN ODOUR ABNORMAL [None]
  - VISUAL IMPAIRMENT [None]
